FAERS Safety Report 4644498-2 (Version None)
Quarter: 2005Q2

REPORT INFORMATION
  Report Type: 
  Country: None (occurrence: None)
  Receive Date: 20050422
  Receipt Date: 20050422
  Transmission Date: 20051028
  Serious: Yes (Hospitalization, Other)
  Sender: FDA-Public Use
  Company Number: None

PATIENT
  Sex: Male
  Weight: 83 kg

DRUGS (5)
  1. TISSUE STEM CELL INFUSION [Suspect]
     Route: 050
     Dates: start: 20040608
  2. VORICONAZOLE [Concomitant]
     Dosage: 200 MG PO BID
     Route: 048
  3. VALTREX [Concomitant]
     Dosage: 500 MG PO BID
     Route: 048
  4. MYCOPHENOLATE [Concomitant]
     Dosage: 500MG 2 CAPS BID
     Route: 048
  5. PREDNISONE TAB [Concomitant]
     Dosage: 15 MG PO BID
     Route: 048

REACTIONS (4)
  - ASPERGILLOSIS [None]
  - COUGH [None]
  - PLEURAL EFFUSION [None]
  - PNEUMOCYSTIS JIROVECI PNEUMONIA [None]
